FAERS Safety Report 23767418 (Version 1)
Quarter: 2024Q2

REPORT INFORMATION
  Report Type: Spontaneous
  Country: SI (occurrence: SI)
  Receive Date: 20240422
  Receipt Date: 20240422
  Transmission Date: 20240716
  Serious: Yes (Hospitalization)
  Sender: FDA-Public Use
  Company Number: None

PATIENT
  Age: 53 Year
  Sex: Female

DRUGS (13)
  1. CISPLATIN [Suspect]
     Active Substance: CISPLATIN
     Indication: Lung adenocarcinoma
     Dosage: STRENGTH: 1 MG/ML DOSE: 160 MG /3 WEEK
     Dates: start: 202310, end: 202311
  2. PEMETREXED [Suspect]
     Active Substance: PEMETREXED
     Indication: Lung adenocarcinoma
     Dosage: STRENGTH: 25 MG/ML DOSE: 1000 MG /3 WEEK
     Dates: start: 202310, end: 202311
  3. NIVOLUMAB [Suspect]
     Active Substance: NIVOLUMAB
     Indication: Lung adenocarcinoma
     Dosage: STRENGTH: 10 MG/ML DOSE: 360 MG /3 WEEK 3 APPLICATIONS OF?CHEMOIMMUNOTHERAPY
     Dates: start: 202310, end: 202311
  4. SULPIRIDE [Concomitant]
     Active Substance: SULPIRIDE
     Dosage: 50 MG IN THE MORNING
  5. AMLOPIN [Concomitant]
     Dosage: 5 MG IN THE MORNING
  6. VENTOLIN [Concomitant]
     Active Substance: ALBUTEROL SULFATE
     Dosage: STRENGTH: 100 MICROGRAMS/PUFF DOSE: 2X PP?AS NECESSARY?PRESSURIZED INHALATION SUSPENSION
  7. QUETIAPINE FUMARATE [Concomitant]
     Active Substance: QUETIAPINE FUMARATE
     Dosage: 25 MG IN THE EVENING
  8. VALSARTAN [Concomitant]
     Active Substance: VALSARTAN
     Dosage: 320 MG IN THE MORNING
  9. SERTRALINE HYDROCHLORIDE [Concomitant]
     Active Substance: SERTRALINE HYDROCHLORIDE
     Dosage: 50 MG IN THE MORNING
  10. ESOMEPRAZOLE MAGNESIUM [Concomitant]
     Active Substance: ESOMEPRAZOLE MAGNESIUM
     Dosage: 2X40MG?HARD GASTRO-RESISTANT CAPSULE
  11. CARDURA [Concomitant]
     Active Substance: DOXAZOSIN MESYLATE
     Dosage: 4 MG IN THE MORNING
  12. ACETAMINOPHEN [Concomitant]
     Active Substance: ACETAMINOPHEN
     Dosage: AS NECESSARY
  13. SERETIDE [Concomitant]
     Active Substance: FLUTICASONE PROPIONATE\SALMETEROL XINAFOATE
     Dosage: STRENGTH: 25 MICROGRAMS/250 MICROGRAMS/PUFF DOSE: 2X2??PRESSURIZED INHALATION SUSPENSION

REACTIONS (4)
  - Pyrexia [Recovering/Resolving]
  - Pneumonitis [Recovering/Resolving]
  - Panniculitis [Recovering/Resolving]
  - Inflammation [Recovering/Resolving]

NARRATIVE: CASE EVENT DATE: 20240101
